FAERS Safety Report 6641257-6 (Version None)
Quarter: 2010Q1

REPORT INFORMATION
  Report Type: 
  Country: None (occurrence: None)
  Receive Date: 20100318
  Receipt Date: 20100305
  Transmission Date: 20100710
  Serious: No
  Sender: FDA-Public Use
  Company Number: US-B.I. PHARMACEUTICALS,INC./RIDGEFIELD-2010-BP-02705BP

PATIENT
  Sex: Female

DRUGS (6)
  1. SPIRIVA [Suspect]
     Indication: ASTHMA
     Dosage: 18 MCG
     Route: 055
     Dates: start: 20100212
  2. ADVAIR HFA [Concomitant]
     Indication: ASTHMA
  3. FLONASE [Concomitant]
     Indication: HYPERSENSITIVITY
  4. MULTI-VITAMIN [Concomitant]
     Indication: MEDICAL DIET
  5. VITAMIN E [Concomitant]
     Indication: MEDICAL DIET
  6. CALCIUM [Concomitant]
     Indication: MEDICAL DIET

REACTIONS (3)
  - FLUSHING [None]
  - INCORRECT ROUTE OF DRUG ADMINISTRATION [None]
  - RASH [None]
